FAERS Safety Report 8909769 (Version 2)
Quarter: 2012Q4

REPORT INFORMATION
  Report Type: 
  Country: US (occurrence: US)
  Receive Date: 20121115
  Receipt Date: 20121226
  Transmission Date: 20130627
  Serious: Yes (Hospitalization, Other)
  Sender: FDA-Public Use
  Company Number: US-PFIZER INC-2012285262

PATIENT
  Age: 63 Year
  Sex: Female
  Weight: 66.67 kg

DRUGS (5)
  1. NEURONTIN [Suspect]
     Indication: ARTHRITIC PAINS
     Dosage: 300 mg, daily
     Dates: end: 201211
  2. ALBUTEROL [Concomitant]
     Indication: CHRONIC OBSTRUCTIVE PULMONARY DISEASE
     Dosage: UNK, 3x/day
  3. CLONIDINE HYDROCHLORIDE [Concomitant]
     Indication: BLOOD PRESSURE HIGH
     Dosage: 0.2 mg, 3x/day
     Route: 048
  4. LISINOPRIL [Concomitant]
     Indication: BLOOD PRESSURE HIGH
     Dosage: 20 mg, daily
  5. GLIPIZIDE [Concomitant]
     Indication: DIABETES
     Dosage: 10 mg,daily

REACTIONS (5)
  - Dyspnoea [Unknown]
  - Weight decreased [Unknown]
  - Loss of consciousness [Unknown]
  - Dysphagia [Unknown]
  - Vomiting [Unknown]
